FAERS Safety Report 5357127-X (Version None)
Quarter: 2007Q2

REPORT INFORMATION
  Report Type: 
  Country: None (occurrence: None)
  Receive Date: 20070612
  Receipt Date: 20070612
  Transmission Date: 20071010
  Serious: Yes (Hospitalization)
  Sender: FDA-Public Use
  Company Number: None

PATIENT
  Age: 68 Year
  Sex: Male

DRUGS (4)
  1. CIPROFLOXACIN [Suspect]
     Indication: URINARY TRACT INFECTION
     Dosage: 400MG OTHER OTHER
     Dates: start: 20070417, end: 20070421
  2. CIPROFLOXACIN [Suspect]
     Indication: WOUND INFECTION
     Dosage: 400MG OTHER OTHER
     Dates: start: 20070417, end: 20070421
  3. CIPROFLOXACIN [Suspect]
     Indication: URINARY TRACT INFECTION
     Dosage: 500MG PO
     Route: 048
  4. CIPROFLOXACIN [Suspect]
     Indication: WOUND INFECTION
     Dosage: 500MG PO
     Route: 048

REACTIONS (1)
  - DIARRHOEA [None]
